FAERS Safety Report 7241618-0 (Version None)
Quarter: 2011Q1

REPORT INFORMATION
  Report Type: 
  Country: None (occurrence: None)
  Receive Date: 20110119
  Receipt Date: 20110119
  Transmission Date: 20110831
  Serious: Yes (Other)
  Sender: FDA-Public Use
  Company Number: None

PATIENT
  Sex: Male
  Weight: 18.2 kg

DRUGS (2)
  1. SINGULAIR [Suspect]
     Indication: ASTHMA
     Dosage: 4 MG DAILY 047 ORAL (CHEWABLE)
     Route: 048
     Dates: start: 20081101, end: 20101201
  2. SINGULAIR [Suspect]
     Indication: MULTIPLE ALLERGIES
     Dosage: 4 MG DAILY 047 ORAL (CHEWABLE)
     Route: 048
     Dates: start: 20081101, end: 20101201

REACTIONS (8)
  - MUSCLE SPASMS [None]
  - SLEEP TERROR [None]
  - AGGRESSION [None]
  - INSOMNIA [None]
  - FATIGUE [None]
  - APATHY [None]
  - EYE DISORDER [None]
  - IRRITABILITY [None]
